FAERS Safety Report 8317522-3 (Version None)
Quarter: 2012Q2

REPORT INFORMATION
  Report Type: 
  Country: None (occurrence: None)
  Receive Date: 20120427
  Receipt Date: 20120420
  Transmission Date: 20120825
  Serious: Yes (Hospitalization, Other)
  Sender: FDA-Public Use
  Company Number: US-ASTRAZENECA-2012SE11604

PATIENT
  Age: 53 Year
  Sex: Male

DRUGS (1)
  1. NEXIUM [Suspect]
     Route: 048

REACTIONS (6)
  - HIATUS HERNIA [None]
  - PANCREATIC DISORDER [None]
  - PAIN [None]
  - DIZZINESS [None]
  - DRUG EFFECT DECREASED [None]
  - OESOPHAGEAL FOOD IMPACTION [None]
